FAERS Safety Report 13010166 (Version 1)
Quarter: 2016Q4

REPORT INFORMATION
  Report Type: Spontaneous
  Country: US (occurrence: US)
  Receive Date: 20161208
  Receipt Date: 20161208
  Transmission Date: 20170207
  Serious: Yes (Death, Other)
  Sender: FDA-Public Use
  Company Number: US-ASTRAZENECA-2016SF28368

PATIENT
  Sex: Male

DRUGS (1)
  1. FORXIGA [Suspect]
     Active Substance: DAPAGLIFLOZIN
     Indication: TYPE 2 DIABETES MELLITUS
     Route: 048

REACTIONS (6)
  - Death [Fatal]
  - Myocardial infarction [Unknown]
  - Diabetic ketoacidosis [Unknown]
  - Renal failure [Unknown]
  - Cerebrovascular accident [Unknown]
  - Respiratory failure [Unknown]
